FAERS Safety Report 6851151-3 (Version None)
Quarter: 2010Q3

REPORT INFORMATION
  Report Type: 
  Country: None (occurrence: None)
  Receive Date: 20100716
  Receipt Date: 20080102
  Transmission Date: 20110219
  Serious: No
  Sender: FDA-Public Use
  Company Number: US-PFIZER INC-2007091879

PATIENT
  Sex: Female
  Weight: 70 kg

DRUGS (7)
  1. CHANTIX [Suspect]
     Indication: SMOKING CESSATION THERAPY
     Dates: start: 20071017
  2. COZAAR [Concomitant]
  3. PREMARIN [Concomitant]
  4. LEXAPRO [Concomitant]
  5. VICODIN [Concomitant]
  6. ARICEPT [Concomitant]
  7. HERBAL NOS/MINERALS NOS [Concomitant]

REACTIONS (8)
  - ABDOMINAL DISCOMFORT [None]
  - DIARRHOEA [None]
  - HEADACHE [None]
  - LAZINESS [None]
  - OCULAR HYPERAEMIA [None]
  - SINUSITIS [None]
  - VISION BLURRED [None]
  - VOMITING [None]
